FAERS Safety Report 6457172-7 (Version None)
Quarter: 2009Q4

REPORT INFORMATION
  Report Type: 
  Country: None (occurrence: None)
  Receive Date: 20091120
  Receipt Date: 20091109
  Transmission Date: 20100525
  Serious: Yes (Hospitalization)
  Sender: FDA-Public Use
  Company Number: 430012J09USA

PATIENT
  Age: 50 Year
  Sex: Female
  Weight: 59 kg

DRUGS (6)
  1. NOVANTRONE [Suspect]
     Indication: MULTIPLE SCLEROSIS
     Dosage: MG/M2, INTRAVENOUS (NOT OTHERWISE SPECIFIED)
     Route: 042
     Dates: start: 20050713, end: 20070112
  2. ZITHROMAX [Suspect]
     Indication: RESPIRATORY TRACT INFECTION
     Dates: start: 20060101
  3. XANAX [Suspect]
  4. PROVIGIL [Suspect]
  5. METHYLPREDNISOLONE [Suspect]
  6. CYANOCOBALAMIN [Suspect]

REACTIONS (3)
  - CONDITION AGGRAVATED [None]
  - CROHN'S DISEASE [None]
  - RESPIRATORY TRACT INFECTION [None]
